FAERS Safety Report 6581577-7 (Version None)
Quarter: 2010Q1

REPORT INFORMATION
  Report Type: 
  Country: None (occurrence: None)
  Receive Date: 20100215
  Receipt Date: 20100209
  Transmission Date: 20100710
  Serious: Yes (Death, Other)
  Sender: FDA-Public Use
  Company Number: JP-JNJFOC-20091205641

PATIENT
  Sex: Male
  Weight: 50 kg

DRUGS (4)
  1. DUROTEP MT [Suspect]
     Indication: CANCER PAIN
     Route: 062
  2. CEFOTAX [Concomitant]
     Route: 042
  3. MOBIC [Concomitant]
     Indication: METASTASES TO BONE
     Route: 048
  4. TAKEPRON [Concomitant]
     Indication: METASTASES TO BONE
     Route: 048

REACTIONS (2)
  - BLOOD BILIRUBIN INCREASED [None]
  - COLON CANCER [None]
